FAERS Safety Report 11391496 (Version 1)
Quarter: 2015Q3

REPORT INFORMATION
  Report Type: Spontaneous
  Country: CA (occurrence: CA)
  Receive Date: 20150818
  Receipt Date: 20150818
  Transmission Date: 20151125
  Serious: Yes (Death)
  Sender: FDA-Public Use
  Company Number: CA-TEVA-586856ACC

PATIENT
  Age: 64 Year
  Sex: Male
  Weight: 83.99 kg

DRUGS (5)
  1. ATORVASTATIN CALCIUM. [Concomitant]
     Active Substance: ATORVASTATIN CALCIUM
     Route: 065
  2. GLYBURIDE. [Concomitant]
     Active Substance: GLYBURIDE
     Route: 065
  3. ASAPHEN [Concomitant]
     Active Substance: ASPIRIN
     Route: 065
  4. TERBINAFINE. [Suspect]
     Active Substance: TERBINAFINE
     Indication: ONYCHOMYCOSIS
     Dosage: 500 MILLIGRAM DAILY;
     Route: 048
  5. METFORMIN [Concomitant]
     Active Substance: METFORMIN HYDROCHLORIDE
     Route: 065

REACTIONS (10)
  - Weight decreased [Fatal]
  - Sepsis [Fatal]
  - Hepatorenal syndrome [Fatal]
  - Hepatic enzyme increased [Fatal]
  - Acute kidney injury [Fatal]
  - Generalised oedema [Fatal]
  - Jaundice [Fatal]
  - Leukocytosis [Fatal]
  - Hepatic cirrhosis [Fatal]
  - Incorrect dose administered [Fatal]
